FAERS Safety Report 23642834 (Version 1)
Quarter: 2024Q1

REPORT INFORMATION
  Report Type: Spontaneous
  Country: FR (occurrence: FR)
  Receive Date: 20240318
  Receipt Date: 20240318
  Transmission Date: 20240410
  Serious: Yes (Other)
  Sender: FDA-Public Use
  Company Number: FR-INSUD PHARMA-2403FR02076

PATIENT

DRUGS (10)
  1. BETAMETHASONE [Suspect]
     Active Substance: BETAMETHASONE\BETAMETHASONE DIPROPIONATE
     Indication: Uveitis
     Dosage: SUBCONJUNCTIVAL INJECTIONS
     Route: 057
  2. METHYLPREDNISOLONE [Suspect]
     Active Substance: METHYLPREDNISOLONE
     Indication: Whipple^s disease
     Dosage: 1 MILLIGRAM/KILOGRAM, QD FOR 3 CONSECUTIVE DAYS
     Route: 042
  3. METHYLPREDNISOLONE [Suspect]
     Active Substance: METHYLPREDNISOLONE
     Indication: Immune reconstitution inflammatory syndrome
  4. PREDNISONE [Suspect]
     Active Substance: PREDNISONE
     Indication: Whipple^s disease
     Dosage: TAPERING REGIMEN (STARTING AT 1 MG/KG/DAY) DURING 1 YEAR
     Route: 048
  5. PREDNISONE [Suspect]
     Active Substance: PREDNISONE
     Indication: Immune reconstitution inflammatory syndrome
  6. TRIAMCINOLONE ACETONIDE [Suspect]
     Active Substance: TRIAMCINOLONE ACETONIDE
     Indication: Eye inflammation
     Dosage: UNK
     Route: 057
  7. OZURDEX [Suspect]
     Active Substance: DEXAMETHASONE
     Indication: Eye inflammation
     Dosage: UNK
  8. CEFTRIAXONE [Concomitant]
     Active Substance: CEFTRIAXONE\CEFTRIAXONE SODIUM
     Indication: Whipple^s disease
     Dosage: 4 GRAM, QD
     Route: 042
  9. DOXYCYCLINE [Concomitant]
     Active Substance: DOXYCYCLINE
     Indication: Whipple^s disease
     Dosage: 100 MILLIGRAM, BID
  10. HYDROXYCHLOROQUINE [Concomitant]
     Active Substance: HYDROXYCHLOROQUINE
     Indication: Whipple^s disease
     Dosage: 200 MILLIGRAM, TID

REACTIONS (1)
  - Cataract [Not Recovered/Not Resolved]
